FAERS Safety Report 11126052 (Version 1)
Quarter: 2015Q2

REPORT INFORMATION
  Report Type: Spontaneous
  Country: CH (occurrence: CH)
  Receive Date: 20150520
  Receipt Date: 20150520
  Transmission Date: 20150821
  Serious: Yes (Other)
  Sender: FDA-Public Use
  Company Number: CH-ASTRAZENECA-2015SE27525

PATIENT
  Sex: Female

DRUGS (3)
  1. INSULIN TRESIBA [Concomitant]
     Dosage: 80 IU/ML, AT NIGHT
  2. FORXIGA [Suspect]
     Active Substance: DAPAGLIFLOZIN
     Indication: TYPE 2 DIABETES MELLITUS
     Route: 048
  3. INSULIN NOVO RAPID [Concomitant]
     Dosage: 30-30-40 = IN TOTAL 100 UNITS/ML

REACTIONS (1)
  - Vomiting [Recovered/Resolved]
